FAERS Safety Report 20546665 (Version 1)
Quarter: 2022Q1

REPORT INFORMATION
  Report Type: Spontaneous
  Country: US (occurrence: US)
  Receive Date: 20220303
  Receipt Date: 20220303
  Transmission Date: 20220423
  Serious: No
  Sender: FDA-Public Use
  Company Number: US-ALLERGAN-2116993US

PATIENT
  Sex: Male

DRUGS (1)
  1. RESTASIS [Suspect]
     Active Substance: CYCLOSPORINE
     Indication: Vision blurred
     Dosage: 2 GTT, BID
     Route: 047
     Dates: start: 202104

REACTIONS (4)
  - Multiple use of single-use product [Unknown]
  - Product storage error [Unknown]
  - Off label use [Unknown]
  - Eye irritation [Not Recovered/Not Resolved]
